FAERS Safety Report 5747568-0 (Version None)
Quarter: 2008Q2

REPORT INFORMATION
  Report Type: 
  Country: None (occurrence: None)
  Receive Date: 20080523
  Receipt Date: 20080513
  Transmission Date: 20081010
  Serious: Yes (Death, Life-Threatening, Hospitalization, Other)
  Sender: FDA-Public Use
  Company Number: DE-JNJFOC-20071109028

PATIENT
  Age: 75 Year
  Sex: Male

DRUGS (14)
  1. REMICADE [Suspect]
     Route: 042
  2. REMICADE [Suspect]
     Indication: RHEUMATOID ARTHRITIS
     Dosage: CUMULATIVE DOSE
     Route: 042
  3. RITUXIMAB [Suspect]
  4. RITUXIMAB [Suspect]
     Indication: RHEUMATOID ARTHRITIS
  5. ADALIMUMAB [Suspect]
     Indication: DRUG USE FOR UNKNOWN INDICATION
     Route: 058
  6. LISINOPRIL [Concomitant]
     Dosage: 5
     Route: 048
  7. NEXIUM [Concomitant]
     Dosage: 20
     Route: 048
  8. IBUPROFEN [Concomitant]
     Dosage: 600
     Route: 048
  9. PROPRANOLOL HCL [Concomitant]
     Dosage: 25
     Route: 048
  10. AMARYL [Concomitant]
     Route: 048
  11. JURNISTA [Concomitant]
  12. PREDNISOLONE [Concomitant]
     Dosage: 20(MORNING)-0-10(EVENING)
     Route: 048
  13. SANDOCAL D FORTE [Concomitant]
  14. NULYTELY [Concomitant]

REACTIONS (19)
  - ATRIAL FIBRILLATION [None]
  - DECUBITUS ULCER [None]
  - DYSPHAGIA [None]
  - DYSPHONIA [None]
  - GASTROINTESTINAL HAEMORRHAGE [None]
  - HORNER'S SYNDROME [None]
  - HYPERTENSION [None]
  - KNEE ARTHROPLASTY [None]
  - MULTI-ORGAN FAILURE [None]
  - PERICARDIAL EFFUSION [None]
  - PERTUSSIS [None]
  - PLEURAL EFFUSION [None]
  - PNEUMONIA [None]
  - POLYNEUROPATHY [None]
  - RECTAL ULCER [None]
  - RESPIRATORY FAILURE [None]
  - RHEUMATOID ARTHRITIS [None]
  - SEPSIS [None]
  - TACHYARRHYTHMIA [None]
